FAERS Safety Report 5349070-7 (Version None)
Quarter: 2007Q2

REPORT INFORMATION
  Report Type: 
  Country: None (occurrence: None)
  Receive Date: 20070516
  Receipt Date: 20070302
  Transmission Date: 20071010
  Serious: No
  Sender: FDA-Public Use
  Company Number: 200711449US

PATIENT
  Age: 60 Year
  Sex: Female

DRUGS (11)
  1. APIDRA [Suspect]
     Indication: DIABETES MELLITUS NON-INSULIN-DEPENDENT
     Dates: start: 20070228
  2. LANTUS [Suspect]
     Indication: DIABETES MELLITUS NON-INSULIN-DEPENDENT
     Dosage: 60 U QD
     Dates: start: 20070228
  3. OPTICLIK [Suspect]
     Indication: DIABETES MELLITUS NON-INSULIN-DEPENDENT
     Dates: start: 20070228
  4. OPTICLIK [Suspect]
     Indication: DIABETES MELLITUS NON-INSULIN-DEPENDENT
     Dates: start: 20070228
  5. SYMLIN [Concomitant]
  6. HYDROCODONE BITARTRATE [Concomitant]
  7. FUROSEMIDE (LASIX /00032601/) [Concomitant]
  8. HYOSCYAMINE [Concomitant]
  9. METHYLSULFONYLMETHANE (MSM) [Concomitant]
  10. LEVOTHYROXINE SODIUM [Concomitant]
  11. COREG [Concomitant]

REACTIONS (3)
  - ABDOMINAL PAIN UPPER [None]
  - HEADACHE [None]
  - MEDICATION ERROR [None]
